FAERS Safety Report 4787951-3 (Version None)
Quarter: 2005Q3

REPORT INFORMATION
  Report Type: 
  Country: None (occurrence: None)
  Receive Date: 20050926
  Receipt Date: 20041110
  Transmission Date: 20060218
  Serious: Yes (Other)
  Sender: FDA-Public Use
  Company Number: US-JNJFOC-20041104369

PATIENT
  Age: 22 Year
  Sex: Female
  Weight: 54.4316 kg

DRUGS (1)
  1. ORTHO-NOVUM 1/35 [Suspect]
     Indication: CONTRACEPTION

REACTIONS (2)
  - PREGNANCY [None]
  - UNINTENDED PREGNANCY [None]
